FAERS Safety Report 13389450 (Version 1)
Quarter: 2017Q1

REPORT INFORMATION
  Report Type: Spontaneous
  Country: US (occurrence: US)
  Receive Date: 20170330
  Receipt Date: 20170330
  Transmission Date: 20170429
  Serious: Yes (Death)
  Sender: FDA-Public Use
  Company Number: US-JNJFOC-20170331879

PATIENT
  Sex: Male

DRUGS (6)
  1. VITAMINE C [Concomitant]
     Active Substance: ASCORBIC ACID
  2. ASPIRIN. [Concomitant]
     Active Substance: ASPIRIN
  3. TAMSULOSIN [Concomitant]
     Active Substance: TAMSULOSIN
  4. IMBRUVICA [Suspect]
     Active Substance: IBRUTINIB
     Indication: CHRONIC LYMPHOCYTIC LEUKAEMIA
     Route: 048
     Dates: start: 20151102
  5. FINASTERIDE. [Concomitant]
     Active Substance: FINASTERIDE
  6. FOLIC ACID. [Concomitant]
     Active Substance: FOLIC ACID

REACTIONS (1)
  - Death [Fatal]
